FAERS Safety Report 25408842 (Version 1)
Quarter: 2025Q2

REPORT INFORMATION
  Report Type: Spontaneous
  Country: GB (occurrence: GB)
  Receive Date: 20250607
  Receipt Date: 20250607
  Transmission Date: 20250716
  Serious: Yes (Other)
  Sender: TEVA
  Company Number: GB-MHRA-35768336

PATIENT
  Age: 79 Year
  Sex: Male

DRUGS (1)
  1. LEVETIRACETAM [Suspect]
     Active Substance: LEVETIRACETAM
     Indication: Constipation
     Dosage: CO-LEVETIRACETAM, DAILY DOSE: 1000 MG
     Route: 065

REACTIONS (8)
  - Contusion [Unknown]
  - Rash papular [Unknown]
  - Skin exfoliation [Unknown]
  - Alopecia [Unknown]
  - Anger [Unknown]
  - Depression [Unknown]
  - Rash papular [Unknown]
  - Rash pruritic [Unknown]
